FAERS Safety Report 8797956 (Version 2)
Quarter: 2013Q4

REPORT INFORMATION
  Report Type: Report from Study
  Country: US (occurrence: US)
  Receive Date: 20120919
  Receipt Date: 20131127
  Transmission Date: 20140711
  Serious: Yes (Other)
  Sender: FDA-Public Use
  Company Number: US-US-EMD SERONO, INC.-7160978

PATIENT
  Age: 35 Year
  Sex: Female

DRUGS (2)
  1. REBIF [Suspect]
     Indication: MULTIPLE SCLEROSIS
     Route: 058
     Dates: start: 20110217, end: 201201
  2. REBIF [Suspect]
     Route: 058
     Dates: start: 201204

REACTIONS (3)
  - Cervical dysplasia [Recovered/Resolved]
  - Influenza [Recovered/Resolved]
  - Injection site erythema [Recovering/Resolving]
